FAERS Safety Report 5478404-8 (Version None)
Quarter: 2007Q4

REPORT INFORMATION
  Report Type: 
  Country: None (occurrence: None)
  Receive Date: 20071005
  Receipt Date: 20071001
  Transmission Date: 20080405
  Serious: Yes (Other)
  Sender: FDA-Public Use
  Company Number: PT-ABBOTT-05P-130-0289985-00

PATIENT
  Sex: Male
  Weight: 68 kg

DRUGS (8)
  1. RITONAVIR SOFT GELATIN CAPSULES [Suspect]
     Indication: HIV INFECTION
     Route: 048
     Dates: start: 20040427
  2. RITONAVIR SOFT GELATIN CAPSULES [Suspect]
     Dates: start: 20040623
  3. RITONAVIR SOFT GELATIN CAPSULES [Suspect]
     Dates: start: 20041118
  4. TMC114/DARUNAVIR [Concomitant]
     Indication: HIV INFECTION
     Route: 048
     Dates: start: 20040427, end: 20040621
  5. TMC114/DARUNAVIR [Concomitant]
     Route: 048
     Dates: start: 20040623, end: 20041116
  6. TMC114/DARUNAVIR [Concomitant]
     Route: 048
     Dates: start: 20041118, end: 20050105
  7. DIDANOSINE [Concomitant]
     Indication: HIV INFECTION
     Route: 048
     Dates: start: 20040427
  8. STAVUDINE [Concomitant]
     Indication: HIV INFECTION
     Route: 048
     Dates: start: 20040427

REACTIONS (1)
  - SUPRAVENTRICULAR TACHYCARDIA [None]
